FAERS Safety Report 4674130-3 (Version None)
Quarter: 2005Q2

REPORT INFORMATION
  Report Type: 
  Country: None (occurrence: None)
  Receive Date: 20050524
  Receipt Date: 20050524
  Transmission Date: 20051028
  Serious: Yes (Hospitalization)
  Sender: FDA-Public Use
  Company Number: None

PATIENT
  Age: 57 Year
  Sex: Female

DRUGS (13)
  1. GABAPENTIN [Suspect]
     Indication: PAIN
     Dosage: 600 MG PO
     Route: 048
  2. METHADONE [Concomitant]
  3. REGLAN [Concomitant]
  4. NOVOLIN INS [Concomitant]
  5. ACTOS [Concomitant]
  6. DEMEROL [Concomitant]
  7. ALLOPURINOL [Concomitant]
  8. HUMULIN R [Concomitant]
  9. VERAPAMIL [Concomitant]
  10. BIS. NA. BICARB [Concomitant]
  11. SYNTHROID [Concomitant]
  12. CLONIDINE [Concomitant]
  13. AMITRIPTYLINE [Concomitant]

REACTIONS (5)
  - DYSKINESIA [None]
  - HALLUCINATION [None]
  - MENTAL STATUS CHANGES [None]
  - MUSCLE CONTRACTIONS INVOLUNTARY [None]
  - MUSCLE TWITCHING [None]
